FAERS Safety Report 7622249-7 (Version None)
Quarter: 2011Q3

REPORT INFORMATION
  Report Type: 
  Country: None (occurrence: None)
  Receive Date: 20110720
  Receipt Date: 20110716
  Transmission Date: 20111222
  Serious: Yes (Hospitalization)
  Sender: FDA-Public Use
  Company Number: US-BRISTOL-MYERS SQUIBB COMPANY-15852379

PATIENT
  Age: 61 Year
  Sex: Male
  Weight: 80 kg

DRUGS (32)
  1. BISACODYL SUPPOSITORY [Concomitant]
  2. LORAZEPAM [Concomitant]
     Dosage: 0.5-1 MG Q12HRS
     Route: 042
  3. KEPPRA [Concomitant]
     Dosage: 1 DF: 2 TAB 1000MG BID
     Route: 048
  4. TRIAMCINOLONE [Concomitant]
     Dosage: 1 DF: 1 APPLICATION CREAM 80G
     Route: 061
  5. MILK OF MAGNESIA TAB [Concomitant]
  6. OCTREOTIDE ACETATE [Concomitant]
  7. SODIUM CHLORIDE [Concomitant]
     Route: 042
  8. OMEPRAZOLE [Concomitant]
     Dosage: 1 DF: 1 CAP 20MG/D
     Route: 048
  9. RANITIDINE [Concomitant]
     Route: 048
  10. OXYCODONE HCL [Concomitant]
     Dosage: 1DF:4-5MG
  11. IPILIMUMAB [Suspect]
     Indication: MALIGNANT MELANOMA
     Route: 042
     Dates: start: 20110202, end: 20110405
  12. METRONIDAZOLE [Concomitant]
     Dosage: ROA:IVPB
  13. PREDNISONE [Concomitant]
     Dosage: TAB
     Route: 048
  14. IMODIUM [Concomitant]
  15. MIDAZOLAM HCL [Concomitant]
     Route: 042
  16. ZOFRAN [Concomitant]
     Indication: VOMITING
  17. ZOFRAN [Concomitant]
     Indication: NAUSEA
  18. HEPARIN SODIUM [Concomitant]
     Route: 058
  19. TENOFOVIR DISOPROXIL FUMARATE [Concomitant]
     Route: 048
  20. VANCOMYCIN [Concomitant]
     Route: 048
  21. FLAGYL [Concomitant]
     Dosage: ALSO ORAL
     Route: 042
  22. TYLENOL-500 [Concomitant]
     Indication: PAIN
  23. ONDANSETRON [Concomitant]
     Dosage: 1 DF: 4-8 MG TAB Q8HRS PRN INJ IV 4MG/2ML
     Route: 048
  24. FERROUS SULFATE TAB [Concomitant]
     Dosage: EC 324MG TAB
     Route: 048
  25. HEPARIN LOCK-FLUSH [Concomitant]
     Route: 042
  26. FENTANYL-100 [Concomitant]
     Route: 042
  27. DICYCLOMINE [Concomitant]
  28. OXYGEN [Concomitant]
  29. SENNA [Concomitant]
  30. VIREAD [Concomitant]
  31. PROCHLORPERAZINE TAB [Concomitant]
     Dosage: INJ Q6HRS
     Route: 042
  32. PREDNISONE [Concomitant]

REACTIONS (5)
  - PAIN [None]
  - NAUSEA [None]
  - CLOSTRIDIAL INFECTION [None]
  - ENTEROCOLITIS [None]
  - VOMITING [None]
